FAERS Safety Report 6228439-2 (Version None)
Quarter: 2009Q2

REPORT INFORMATION
  Report Type: 
  Country: None (occurrence: None)
  Receive Date: 20090612
  Receipt Date: 20090602
  Transmission Date: 20091009
  Serious: Yes (Hospitalization, Other)
  Sender: FDA-Public Use
  Company Number: US-ELI_LILLY_AND_COMPANY-US200806002674

PATIENT
  Age: 84 Year
  Sex: Female

DRUGS (6)
  1. FORTEO [Suspect]
     Dosage: UNK, UNK
     Dates: start: 20080201
  2. ATENOLOL [Concomitant]
     Dosage: 50 MG, DAILY (1/D)
     Route: 048
     Dates: start: 20071201
  3. CALTRATE [Concomitant]
     Dosage: 600/1500 MG
     Route: 048
     Dates: start: 20061101
  4. FUROSEMIDE [Concomitant]
     Dosage: 40 MG, DAILY (1/D)
     Route: 048
     Dates: start: 20071001
  5. LISINOPRIL [Concomitant]
     Dosage: 40 MG, DAILY (1/D)
     Route: 048
     Dates: start: 20061101
  6. SIMVASTATIN [Concomitant]
     Dosage: 40 MG, DAILY (1/D)
     Route: 048
     Dates: start: 20080618

REACTIONS (2)
  - ACCELERATED HYPERTENSION [None]
  - TRANSIENT ISCHAEMIC ATTACK [None]
